FAERS Safety Report 17146345 (Version 1)
Quarter: 2019Q4

REPORT INFORMATION
  Report Type: Spontaneous
  Country: FR (occurrence: FR)
  Receive Date: 20191212
  Receipt Date: 20191212
  Transmission Date: 20200122
  Serious: Yes (Hospitalization)
  Sender: FDA-Public Use
  Company Number: FR-TEVA-2019-FR-1149045

PATIENT
  Age: 65 Year
  Sex: Female

DRUGS (1)
  1. FURADANTINE [Suspect]
     Active Substance: NITROFURANTOIN
     Indication: BACTERIURIA
     Route: 048
     Dates: start: 20191013, end: 20191020

REACTIONS (6)
  - Pyrexia [Recovered/Resolved]
  - Hypertension [Recovering/Resolving]
  - Hepatitis [Recovering/Resolving]
  - Proteinuria [Not Recovered/Not Resolved]
  - Thrombotic microangiopathy [Not Recovered/Not Resolved]
  - Rash [Recovered/Resolved]

NARRATIVE: CASE EVENT DATE: 20191018
